FAERS Safety Report 4979588-8 (Version None)
Quarter: 2006Q2

REPORT INFORMATION
  Report Type: 
  Country: None (occurrence: None)
  Receive Date: 20060418
  Receipt Date: 20060328
  Transmission Date: 20061013
  Serious: No
  Sender: FDA-Public Use
  Company Number: CA200601004087

PATIENT
  Age: 75 Year
  Sex: Female
  Weight: 95.2 kg

DRUGS (22)
  1. FORTEO [Suspect]
     Indication: OSTEOPOROSIS
     Dosage: 20 UG, DAILY (1/D)
     Dates: start: 20060117, end: 20060215
  2. FORTEO PEN (FORTEO PEN) PEN, DISPOSABLE [Concomitant]
  3. CALCIUM CARBONATE (CALCIUM CARBONATE) [Concomitant]
  4. DIMENHYDRINATE [Concomitant]
  5. ECHINACEA EXTRACT (ECHINACEA EXTRACT) [Concomitant]
  6. FERROUS GLUCONATE (FERROUS GLUCONATE) [Concomitant]
  7. LEVOTHYROXINE SODIUM [Concomitant]
  8. LISINOPRIL [Concomitant]
  9. OMEPRAZOLE MAGNESIUM (OMEPRAZOLE MAGNESIUM) [Concomitant]
  10. ACETAMINOPHEN [Concomitant]
  11. ATORVASTATIN CALCIUM [Concomitant]
  12. OXYCODONE HCL [Concomitant]
  13. LACTULOSE [Concomitant]
  14. ALUMINUM HYDROXIDE AND MAGNESIUM TRISILICATE [Concomitant]
  15. VITAMIN B12 (CYANOCOBALAMIN) INJECTION [Concomitant]
  16. CLOTRIMAZOLE [Concomitant]
  17. HYDROCORTISONE [Concomitant]
  18. CENTRUM FORTE (ASCORBIC ACID, BETACAROTENE, COLECALCIFEROL, FOLIC ACID [Concomitant]
  19. FLAXSEED OIL (LINSEED OIL) [Concomitant]
  20. TOLTERODINE TARTRATE [Concomitant]
  21. TRIAMCINOLONE [Concomitant]
  22. ZINC SULFATE (ZINC SULFATE) [Concomitant]

REACTIONS (2)
  - CEREBROVASCULAR ACCIDENT [None]
  - TRANSIENT ISCHAEMIC ATTACK [None]
